FAERS Safety Report 7057226-0 (Version None)
Quarter: 2010Q4

REPORT INFORMATION
  Report Type: 
  Country: None (occurrence: None)
  Receive Date: 20101022
  Receipt Date: 20101015
  Transmission Date: 20110411
  Serious: Yes (Hospitalization)
  Sender: FDA-Public Use
  Company Number: JP-BAYER-201014821BYL

PATIENT
  Age: 81 Year
  Sex: Male
  Weight: 52 kg

DRUGS (21)
  1. NEXAVAR [Suspect]
     Indication: HEPATIC NEOPLASM MALIGNANT
     Dosage: TOTAL DAILY DOSE: 400 MG  UNIT DOSE: 200 MG
     Route: 048
     Dates: start: 20100906
  2. NORVASC [Concomitant]
     Indication: HYPERTENSION
     Dosage: UNIT DOSE: 5 MG
     Route: 048
     Dates: start: 20091001
  3. BLOPRESS [Concomitant]
     Indication: HYPERTENSION
     Dosage: UNIT DOSE: 4 MG
     Route: 048
     Dates: start: 20091001
  4. PLAVIX [Concomitant]
     Indication: CEREBRAL INFARCTION
     Dosage: UNIT DOSE: 75 MG
     Route: 048
     Dates: start: 20091001
  5. DOXAZOSIN MESYLATE [Concomitant]
     Indication: HYPERTENSION
     Dosage: UNIT DOSE: 2 MG
     Route: 048
     Dates: start: 20091001
  6. MUCOSTA [Concomitant]
     Indication: GASTRITIS
     Dosage: UNIT DOSE: 100 MG
     Route: 048
     Dates: start: 20091001
  7. GASTER [Concomitant]
     Indication: GASTRITIS
     Dosage: UNIT DOSE: 20 MG
     Route: 048
     Dates: start: 20091001
  8. MAGNESIUM OXIDE [Concomitant]
     Dosage: UNIT DOSE: 50 MG
     Route: 048
     Dates: start: 20091001
  9. PURSENNID [Concomitant]
     Dosage: UNIT DOSE: 12 MG
     Route: 048
     Dates: start: 20091001
  10. SERENACE [Concomitant]
     Indication: CEREBRAL INFARCTION
     Dosage: UNIT DOSE: 0.75 MG
     Route: 048
     Dates: end: 20100909
  11. GRAMALIL [Concomitant]
     Indication: CEREBRAL INFARCTION
     Dosage: UNIT DOSE: 25 MG
     Route: 048
     Dates: end: 20100909
  12. GRAMALIL [Concomitant]
     Dosage: UNIT DOSE: 25 MG
     Route: 048
     Dates: end: 20100902
  13. GRAMALIL [Concomitant]
     Dosage: UNIT DOSE: 25 MG
     Route: 048
     Dates: start: 20100914, end: 20100928
  14. RIVOTRIL [Concomitant]
     Indication: CEREBRAL INFARCTION
     Dosage: UNIT DOSE: 0.5 MG
     Route: 048
     Dates: start: 20100903, end: 20100909
  15. TETRAMIDE [Concomitant]
     Indication: CEREBRAL INFARCTION
     Dosage: UNIT DOSE: 30 MG
     Route: 048
     Dates: start: 20100910, end: 20100913
  16. TETRAMIDE [Concomitant]
     Dosage: UNIT DOSE: 10 MG
     Route: 048
     Dates: start: 20100930
  17. ROHYPNOL [Concomitant]
     Indication: CEREBRAL INFARCTION
     Dosage: UNIT DOSE: 2 MG
     Route: 048
     Dates: start: 20100910, end: 20100913
  18. ROHYPNOL [Concomitant]
     Dosage: UNIT DOSE: 2 MG
     Route: 048
     Dates: start: 20100930
  19. LORAMET [Concomitant]
     Indication: CEREBRAL INFARCTION
     Route: 048
     Dates: start: 20100930
  20. TIAPRIM [Concomitant]
     Indication: CEREBRAL INFARCTION
     Dosage: UNIT DOSE: 25 MG
     Route: 048
     Dates: start: 20100930, end: 20100930
  21. RISPERIDONE [Concomitant]
     Indication: CEREBRAL INFARCTION
     Route: 048
     Dates: start: 20101001

REACTIONS (2)
  - DELIRIUM [None]
  - HYPERTENSION [None]
